FAERS Safety Report 8476488-6 (Version None)
Quarter: 2012Q2

REPORT INFORMATION
  Report Type: 
  Country: None (occurrence: None)
  Receive Date: 20120628
  Receipt Date: 20120618
  Transmission Date: 20120825
  Serious: Yes (Other)
  Sender: FDA-Public Use
  Company Number: US-BAYER-2012-060951

PATIENT
  Age: 27 Year
  Sex: Male
  Weight: 82 kg

DRUGS (1)
  1. ASPIRIN [Suspect]
     Indication: TOOTHACHE
     Dosage: 2 TABLETS 1 WEEK AGO THEN ONE EVERY OTHER DAY UNTIL 2 NIGHTS AGO
     Dates: start: 20120601, end: 20120601

REACTIONS (5)
  - EYELID OEDEMA [None]
  - DYSPNOEA [None]
  - PERIORBITAL HAEMATOMA [None]
  - SWELLING FACE [None]
  - DYSPHAGIA [None]
